FAERS Safety Report 17471809 (Version 1)
Quarter: 2020Q1

REPORT INFORMATION
  Report Type: Report from Study
  Country: ES (occurrence: ES)
  Receive Date: 20200228
  Receipt Date: 20200228
  Transmission Date: 20200409
  Serious: Yes (Hospitalization, Other)
  Sender: FDA-Public Use
  Company Number: ES-GLAXOSMITHKLINE-ES2020032758

PATIENT
  Age: 56 Year
  Sex: Male

DRUGS (5)
  1. DIAZEPAM. [Concomitant]
     Active Substance: DIAZEPAM
     Indication: BACK PAIN
     Dosage: 5 MG, QD
     Route: 048
     Dates: start: 20190823, end: 20190826
  2. NAPROXEN. [Interacting]
     Active Substance: NAPROXEN
     Indication: BACK PAIN
     Dosage: 1 G, QD
     Route: 048
     Dates: start: 20190823, end: 20190826
  3. METAMIZOL [Concomitant]
     Active Substance: METAMIZOLE SODIUM
     Indication: BACK PAIN
     Dosage: 1.75 G, QD
     Route: 048
     Dates: start: 20190823, end: 20190826
  4. DICLOFENAC [Suspect]
     Active Substance: DICLOFENAC
     Indication: BACK PAIN
     Dosage: 150 MG, WE
     Route: 048
     Dates: start: 20190819, end: 20190826
  5. PARACETAMOL [Concomitant]
     Active Substance: ACETAMINOPHEN
     Indication: BACK PAIN
     Dosage: 3 G, QD
     Route: 048
     Dates: start: 20190819, end: 20190826

REACTIONS (2)
  - Drug interaction [Unknown]
  - Upper gastrointestinal haemorrhage [Recovered/Resolved]

NARRATIVE: CASE EVENT DATE: 20190823
